FAERS Safety Report 20522028 (Version 1)
Quarter: 2022Q1

REPORT INFORMATION
  Report Type: Spontaneous
  Country: US (occurrence: US)
  Receive Date: 20220226
  Receipt Date: 20220226
  Transmission Date: 20220423
  Serious: Yes (Other)
  Sender: FDA-Public Use
  Company Number: US-NOVARTISPH-NVSC2022US045380

PATIENT
  Age: 75 Year
  Sex: Male

DRUGS (3)
  1. RANITIDINE [Suspect]
     Active Substance: RANITIDINE
     Indication: Hyperchlorhydria
     Dosage: ,,150 MG,,,,,DAILY,
     Route: 048
     Dates: start: 200601, end: 201901
  2. RANITIDINE [Suspect]
     Active Substance: RANITIDINE
     Indication: Hyperchlorhydria
     Dosage: ,,150 MG,,,,,DAILY,
     Route: 048
     Dates: start: 200601, end: 201901
  3. RANITIDINE [Suspect]
     Active Substance: RANITIDINE
     Indication: Hyperchlorhydria
     Dosage: ,,,UNKNOWN AT THIS TIME,OTHER,DAILY,
     Route: 048
     Dates: start: 201001, end: 201901

REACTIONS (3)
  - Oesophageal carcinoma [Recovering/Resolving]
  - Gastric cancer [Recovering/Resolving]
  - Incorrect dose administered [Unknown]

NARRATIVE: CASE EVENT DATE: 20170101
